FAERS Safety Report 4647716-X (Version None)
Quarter: 2005Q2

REPORT INFORMATION
  Report Type: 
  Country: None (occurrence: None)
  Receive Date: 20050427
  Receipt Date: 20050427
  Transmission Date: 20051028
  Serious: Yes (Other)
  Sender: FDA-Public Use
  Company Number: None

PATIENT
  Age: 45 Year
  Sex: Male
  Weight: 99.7913 kg

DRUGS (1)
  1. CLOZARIL [Suspect]
     Dosage: 2AM / 5 PM TAKEN PO
     Route: 048

REACTIONS (1)
  - DRUG LEVEL CHANGED [None]
